FAERS Safety Report 8154001-0 (Version None)
Quarter: 2012Q1

REPORT INFORMATION
  Report Type: 
  Country: None (occurrence: None)
  Receive Date: 20120221
  Receipt Date: 20120221
  Transmission Date: 20120608
  Serious: Yes (Hospitalization)
  Sender: FDA-Public Use
  Company Number: None

PATIENT
  Age: 64 Year
  Sex: Male
  Weight: 91.172 kg

DRUGS (2)
  1. ZOLPIDEM [Suspect]
     Indication: SLEEP DISORDER
  2. NADOLOL [Concomitant]

REACTIONS (2)
  - CONFUSIONAL STATE [None]
  - VISUAL IMPAIRMENT [None]
